FAERS Safety Report 15492800 (Version 1)
Quarter: 2018Q4

REPORT INFORMATION
  Report Type: Spontaneous
  Country: US (occurrence: US)
  Receive Date: 20181012
  Receipt Date: 20181012
  Transmission Date: 20190205
  Serious: Yes (Other)
  Sender: FDA-Public Use
  Company Number: US-BAYER-2018-183832

PATIENT
  Age: 33 Year

DRUGS (1)
  1. BAYER ASPIRIN [Suspect]
     Active Substance: ASPIRIN
     Indication: PROPHYLAXIS
     Dosage: 1 DF, OM
     Dates: start: 1996

REACTIONS (4)
  - Myocardial infarction [None]
  - Coronary artery bypass [None]
  - Stent placement [None]
  - Product use in unapproved indication [None]

NARRATIVE: CASE EVENT DATE: 1996
